FAERS Safety Report 15641198 (Version 1)
Quarter: 2018Q4

REPORT INFORMATION
  Report Type: Spontaneous
  Country: NO (occurrence: NO)
  Receive Date: 20181120
  Receipt Date: 20181120
  Transmission Date: 20190205
  Serious: Yes (Hospitalization, Other)
  Sender: FDA-Public Use
  Company Number: NO-BAUSCH-BL-2018-031792

PATIENT
  Age: 49 Year
  Sex: Male

DRUGS (6)
  1. PREDNISOLONE. [Suspect]
     Active Substance: PREDNISOLONE
     Indication: PULMONARY TOXICITY
     Route: 065
  2. PREDNISOLONE. [Suspect]
     Active Substance: PREDNISOLONE
     Dosage: INCREASED TO 80 MG DAILY
     Route: 065
  3. TETRACYCLINE [Concomitant]
     Active Substance: TETRACYCLINE
     Indication: PNEUMONITIS
  4. PREDNISOLONE. [Suspect]
     Active Substance: PREDNISOLONE
     Indication: PNEUMONITIS
     Dosage: DOSAGE WAS SLOWLY TAPERED TO 30 MG AFTER 3 WEEKS
     Route: 065
  5. TETRACYCLINE [Concomitant]
     Active Substance: TETRACYCLINE
     Indication: PULMONARY TOXICITY
  6. PREDNISOLONE. [Suspect]
     Active Substance: PREDNISOLONE
     Dosage: INCREASED TO 80 MG DAILY
     Route: 065

REACTIONS (3)
  - Candida infection [Recovering/Resolving]
  - Cytomegalovirus infection [Recovering/Resolving]
  - Pneumocystis jirovecii infection [Recovering/Resolving]
